FAERS Safety Report 4541103-0 (Version None)
Quarter: 2004Q4

REPORT INFORMATION
  Report Type: 
  Country: None (occurrence: None)
  Receive Date: 20041228
  Receipt Date: 20041214
  Transmission Date: 20050328
  Serious: No
  Sender: FDA-Public Use
  Company Number: 2004-123470-NL

PATIENT
  Age: 43 Year
  Sex: Female

DRUGS (1)
  1. MIRTAZAPINE [Suspect]
     Dosage: 15 MG
     Dates: start: 20041103, end: 20041117

REACTIONS (2)
  - AGGRESSION [None]
  - ANTISOCIAL BEHAVIOUR [None]
